FAERS Safety Report 4566476-4 (Version None)
Quarter: 2005Q1

REPORT INFORMATION
  Report Type: 
  Country: None (occurrence: None)
  Receive Date: 20050128
  Receipt Date: 20050118
  Transmission Date: 20050727
  Serious: Yes (Death, Hospitalization)
  Sender: FDA-Public Use
  Company Number: US-2004-037272

PATIENT
  Age: 36 Year
  Sex: Female

DRUGS (9)
  1. BETASERON [Suspect]
     Indication: RELAPSING-REMITTING MULTIPLE SCLEROSIS
     Dosage: 8 MIU, EVERY 2 D, SUBCUTANEOUS
     Route: 058
     Dates: start: 20031001, end: 20031124
  2. ULTRAM [Concomitant]
  3. ATIVAN [Concomitant]
  4. PREDNISONE [Concomitant]
  5. FLEXERIL [Concomitant]
  6. CELEXA [Concomitant]
  7. AMBIEN [Concomitant]
  8. ROBITUSSIN ^WYETH^ (GUAIFENESIN) [Concomitant]
  9. TYLENOL [Concomitant]

REACTIONS (6)
  - CONDITION AGGRAVATED [None]
  - HAEMATOTOXICITY [None]
  - INFLUENZA LIKE ILLNESS [None]
  - MULTIPLE SCLEROSIS [None]
  - MYOCARDIAL INFARCTION [None]
  - RESPIRATORY FAILURE [None]
